FAERS Safety Report 10883994 (Version 1)
Quarter: 2015Q1

REPORT INFORMATION
  Report Type: Spontaneous
  Country: US (occurrence: US)
  Receive Date: 20150304
  Receipt Date: 20150304
  Transmission Date: 20150721
  Serious: No
  Sender: FDA-Public Use
  Company Number: US-009507513-1502USA008033

PATIENT
  Age: 21 Year
  Sex: Female
  Weight: 138 kg

DRUGS (1)
  1. NEXPLANON [Suspect]
     Active Substance: ETONOGESTREL
     Indication: CONTRACEPTION
     Dosage: 1 DF(ROD), EVERY 3 YEARS
     Route: 059
     Dates: start: 20131020

REACTIONS (4)
  - Weight increased [Unknown]
  - Alopecia [Unknown]
  - Implant site pain [Unknown]
  - Hot flush [Unknown]

NARRATIVE: CASE EVENT DATE: 20131020
